FAERS Safety Report 10070492 (Version 1)
Quarter: 2014Q2

REPORT INFORMATION
  Report Type: Report from Study
  Country: MX (occurrence: MX)
  Receive Date: 20140410
  Receipt Date: 20140410
  Transmission Date: 20141212
  Serious: Yes (Hospitalization, Disabling)
  Sender: FDA-Public Use
  Company Number: MX-INCYTE CORPORATION-2014IN000922

PATIENT
  Age: 71 Year
  Sex: Female

DRUGS (3)
  1. INC424 [Suspect]
     Indication: MYELOFIBROSIS
     Dosage: 20 MG, BID
     Route: 048
     Dates: start: 20140312, end: 20140327
  2. GLIBENCLAMIDE [Concomitant]
     Dosage: UNK
  3. ENALAPRIL [Concomitant]
     Dosage: UNK
     Dates: start: 20130813

REACTIONS (1)
  - Splenic rupture [Recovering/Resolving]
